FAERS Safety Report 8769587 (Version 1)
Quarter: 2012Q4

REPORT INFORMATION
  Report Type: 
  Country: BR (occurrence: BR)
  Receive Date: 20120905
  Receipt Date: 20120905
  Transmission Date: 20130627
  Serious: Yes (Hospitalization)
  Sender: FDA-Public Use
  Company Number: PHHY2012BR075524

PATIENT
  Age: 77 Year
  Sex: Male

DRUGS (4)
  1. BUDESONIDE, FORMOTEROL FUMARATE [Suspect]
     Indication: DYSPNOEA
     Dosage: formoterol fumarate 24 mcg/ Budesonide 800 mcg
  2. TIOTROPIUM [Concomitant]
     Indication: DYSPNOEA
     Dosage: UNK UKN, UNK
  3. TIOTROPIUM [Concomitant]
     Dosage: 5 ug, QD
  4. THEOPHYLLINE [Concomitant]
     Indication: DYSPNOEA
     Dosage: 400 mg, QD

REACTIONS (5)
  - Depression [Recovering/Resolving]
  - Quality of life decreased [Recovering/Resolving]
  - Chronic obstructive pulmonary disease [Recovering/Resolving]
  - Infection [Recovering/Resolving]
  - Tracheobronchitis [Recovering/Resolving]
